FAERS Safety Report 6704545-0 (Version None)
Quarter: 2010Q2

REPORT INFORMATION
  Report Type: 
  Country: None (occurrence: None)
  Receive Date: 20100430
  Receipt Date: 20100422
  Transmission Date: 20101027
  Serious: Yes (Other)
  Sender: FDA-Public Use
  Company Number: PHHY2010US26157

PATIENT
  Sex: Female

DRUGS (4)
  1. RECLAST [Suspect]
     Dosage: UNK,UNK
     Route: 042
  2. CITRACAL [Concomitant]
     Dosage: UNK,UNK
  3. VITAMIN B COMPLEX TAB [Concomitant]
     Dosage: UNK,UNK
  4. VITAMIN TAB [Concomitant]
     Dosage: UNK,UNK

REACTIONS (3)
  - ARTHRITIS [None]
  - BURSITIS [None]
  - PARAESTHESIA [None]
